FAERS Safety Report 14654284 (Version 1)
Quarter: 2018Q1

REPORT INFORMATION
  Report Type: Spontaneous
  Country: US (occurrence: US)
  Receive Date: 20180319
  Receipt Date: 20180319
  Transmission Date: 20180509
  Serious: No
  Sender: FDA-Public Use
  Company Number: US-BIOGEN-2018BI00540175

PATIENT
  Age: 66 Year
  Sex: Female

DRUGS (1)
  1. ZINBRYTA [Suspect]
     Active Substance: DACLIZUMAB
     Indication: PRODUCT USED FOR UNKNOWN INDICATION
     Route: 065
     Dates: start: 20170210, end: 20180309

REACTIONS (4)
  - Head discomfort [Unknown]
  - Aphasia [Unknown]
  - Malaise [Unknown]
  - Dysarthria [Unknown]

NARRATIVE: CASE EVENT DATE: 20180209
